FAERS Safety Report 4740800-1 (Version None)
Quarter: 2005Q3

REPORT INFORMATION
  Report Type: 
  Country: None (occurrence: None)
  Receive Date: 20050810
  Receipt Date: 20040621
  Transmission Date: 20060218
  Serious: No
  Sender: FDA-Public Use
  Company Number: US-GLAXOSMITHKLINE-A0515437A

PATIENT
  Age: 82 Year
  Sex: Female

DRUGS (2)
  1. TAGAMET HB 200 [Suspect]
     Indication: ECZEMA
     Dates: start: 20040620
  2. CLARIMAX [Concomitant]

REACTIONS (3)
  - ABDOMINAL PAIN UPPER [None]
  - DIARRHOEA [None]
  - FLATULENCE [None]
